FAERS Safety Report 23788494 (Version 1)
Quarter: 2024Q2

REPORT INFORMATION
  Report Type: Spontaneous
  Country: CN (occurrence: CN)
  Receive Date: 20240426
  Receipt Date: 20240426
  Transmission Date: 20240716
  Serious: Yes (Other)
  Sender: FDA-Public Use
  Company Number: CN-SA-SAC20240424000367

PATIENT
  Age: 67 Year
  Sex: Male

DRUGS (2)
  1. ENOXAPARIN SODIUM [Suspect]
     Active Substance: ENOXAPARIN SODIUM
     Indication: Thrombosis prophylaxis
     Dosage: 4000 IU, QD
     Route: 058
     Dates: start: 20240326, end: 20240409
  2. OZAGREL TROMETAMOL [Concomitant]
     Indication: Anticoagulant therapy
     Dosage: UNK
     Dates: end: 20240403

REACTIONS (3)
  - Enterococcal infection [Unknown]
  - Pyrexia [Unknown]
  - Coagulation time prolonged [Recovering/Resolving]

NARRATIVE: CASE EVENT DATE: 20240326
